FAERS Safety Report 15630062 (Version 1)
Quarter: 2018Q4

REPORT INFORMATION
  Report Type: Spontaneous
  Country: US (occurrence: US)
  Receive Date: 20181118
  Receipt Date: 20181118
  Transmission Date: 20190205
  Serious: No
  Sender: FDA-Public Use
  Company Number: US-AMPHASTAR PHARMACEUTICALS, INC.-2058986

PATIENT
  Age: 37 Year
  Sex: Male
  Weight: 152.27 kg

DRUGS (1)
  1. ENOXAPARIN SODIUM. [Suspect]
     Active Substance: ENOXAPARIN SODIUM

REACTIONS (2)
  - Injection site pain [Recovered/Resolved]
  - Injection site bruising [Recovering/Resolving]
